FAERS Safety Report 14332685 (Version 1)
Quarter: 2017Q4

REPORT INFORMATION
  Report Type: Spontaneous
  Country: US (occurrence: US)
  Receive Date: 20171227
  Receipt Date: 20171227
  Transmission Date: 20180321
  Serious: Yes (Other)
  Sender: FDA-Public Use
  Company Number: None

PATIENT
  Age: 64 Year
  Sex: Female

DRUGS (1)
  1. IBRANCE [Suspect]
     Active Substance: PALBOCICLIB
     Indication: BREAST CANCER
     Dosage: 125 MG DAILY X 21 DAYS, OFF 7 DAYS BY MOUTH
     Route: 048
     Dates: start: 20170914

REACTIONS (1)
  - Vomiting [None]

NARRATIVE: CASE EVENT DATE: 20171222
